FAERS Safety Report 14418950 (Version 1)
Quarter: 2018Q1

REPORT INFORMATION
  Report Type: Not Available
  Country: BR (occurrence: BR)
  Receive Date: 20180122
  Receipt Date: 20180122
  Transmission Date: 20180509
  Serious: Yes (Other)
  Sender: FDA-Public Use
  Company Number: BR-ANIPHARMA-2018-BR-000001

PATIENT
  Age: 62 Year
  Sex: Female

DRUGS (5)
  1. LITHIUM. [Suspect]
     Active Substance: LITHIUM
  2. VALPROIC ACID (NON-SPECIFIC) [Suspect]
     Active Substance: VALPROIC ACID
     Dosage: 1000 MG DAILY
  3. CALCITRIOL. [Concomitant]
     Active Substance: CALCITRIOL
  4. CALCIUM CARBONATE. [Concomitant]
     Active Substance: CALCIUM CARBONATE
  5. LEVOTHYROXINE. [Concomitant]
     Active Substance: LEVOTHYROXINE

REACTIONS (3)
  - Trismus [Unknown]
  - Tremor [Unknown]
  - Tooth fracture [Unknown]
